FAERS Safety Report 10479690 (Version 1)
Quarter: 2014Q3

REPORT INFORMATION
  Report Type: Spontaneous
  Country: US (occurrence: None)
  Receive Date: 20140926
  Receipt Date: 20140926
  Transmission Date: 20150326
  Serious: Yes (Hospitalization, Other)
  Sender: FDA-Public Use
  Company Number: None

PATIENT
  Age: 45 Year
  Sex: Male
  Weight: 93.44 kg

DRUGS (5)
  1. PREDNISONE. [Concomitant]
     Active Substance: PREDNISONE
  2. CALAMINE [Concomitant]
     Active Substance: CALAMINE\FERRIC OXIDE RED\ZINC OXIDE
  3. CYCLOBENZAPRINE HCL [Suspect]
     Active Substance: CYCLOBENZAPRINE HYDROCHLORIDE
  4. LIDOPRO [Suspect]
     Active Substance: CAPSAICIN\LIDOCAINE\MENTHOL\METHYL SALICYLATE
     Indication: MUSCLE SPASMS
     Dosage: 90 X 5MG TAB, 3X, 3 TIMES ???, SKIN
     Dates: start: 20140912, end: 20140914
  5. LOTION BENADRYL [Concomitant]

REACTIONS (5)
  - Swelling [None]
  - Application site discolouration [None]
  - Application site erythema [None]
  - Pruritus [None]
  - Rash [None]

NARRATIVE: CASE EVENT DATE: 20140912
